FAERS Safety Report 10156546 (Version 2)
Quarter: 2014Q2

REPORT INFORMATION
  Report Type: Report from Study
  Country: US (occurrence: US)
  Receive Date: 20140507
  Receipt Date: 20140507
  Transmission Date: 20141212
  Serious: Yes (Hospitalization)
  Sender: FDA-Public Use
  Company Number: US-ROCHE-1365457

PATIENT
  Age: 57 Year
  Sex: Male

DRUGS (5)
  1. PEGASYS [Suspect]
     Indication: PRODUCT USED FOR UNKNOWN INDICATION
     Route: 065
  2. COPEGUS [Suspect]
     Indication: HEPATITIS
     Route: 065
     Dates: start: 201404
  3. INCIVEK [Suspect]
     Indication: HEPATITIS
     Route: 065
  4. PERCOCET [Concomitant]
     Indication: PAIN
  5. OXYCODONE [Concomitant]

REACTIONS (22)
  - Tooth socket haemorrhage [Unknown]
  - Headache [Unknown]
  - Urinary tract infection [Unknown]
  - Ammonia increased [Unknown]
  - Gingival bleeding [Unknown]
  - Malaise [Unknown]
  - Anger [Unknown]
  - Pruritus [Unknown]
  - Rash [Unknown]
  - Haemorrhoids [Unknown]
  - Visual impairment [Unknown]
  - Pyrexia [Unknown]
  - Tooth fracture [Unknown]
  - Tooth loss [Unknown]
  - Gingival pain [Unknown]
  - Nausea [Unknown]
  - Limb injury [Unknown]
  - Cardiac murmur [Unknown]
  - Platelet count decreased [Unknown]
  - Increased tendency to bruise [Unknown]
  - Hepatitis [Unknown]
  - Eye pain [Unknown]
